FAERS Safety Report 22303767 (Version 1)
Quarter: 2023Q2

REPORT INFORMATION
  Report Type: Spontaneous
  Country: DE (occurrence: DE)
  Receive Date: 20230510
  Receipt Date: 20230510
  Transmission Date: 20230722
  Serious: Yes (Life-Threatening, Hospitalization, Other)
  Sender: FDA-Public Use
  Company Number: DE-ROCHE-3252038

PATIENT
  Age: 68 Year
  Sex: Female

DRUGS (27)
  1. BENDAMUSTINE HYDROCHLORIDE [Suspect]
     Active Substance: BENDAMUSTINE HYDROCHLORIDE
     Indication: Diffuse large B-cell lymphoma
     Dosage: 140 MILLIGRAM
     Route: 065
     Dates: start: 20150214
  2. BENDAMUSTINE HYDROCHLORIDE [Suspect]
     Active Substance: BENDAMUSTINE HYDROCHLORIDE
     Indication: Follicular lymphoma
     Dosage: 140 MILLIGRAM
     Route: 065
     Dates: start: 20150215
  3. BENDAMUSTINE HYDROCHLORIDE [Suspect]
     Active Substance: BENDAMUSTINE HYDROCHLORIDE
     Dosage: UNK, (R-BENDAMUSTIN, 1ST LINE)
     Route: 065
     Dates: start: 20181203, end: 20200218
  4. BENDAMUSTINE HYDROCHLORIDE [Suspect]
     Active Substance: BENDAMUSTINE HYDROCHLORIDE
     Dosage: UNK, (R-POLATUZUMAB-BENDAMUSTIN, 5TH LINE)
     Route: 065
     Dates: start: 202207, end: 202210
  5. CYCLOPHOSPHAMIDE\DOXORUBICIN\PREDNISONE\VINCRISTINE [Suspect]
     Active Substance: CYCLOPHOSPHAMIDE\DOXORUBICIN\PREDNISONE\VINCRISTINE
     Indication: Diffuse large B-cell lymphoma
     Dosage: UNK, (R-CHOP, 2ND LINE)
     Route: 065
     Dates: start: 20200701, end: 20201201
  6. CYCLOPHOSPHAMIDE\DOXORUBICIN\PREDNISONE\VINCRISTINE [Suspect]
     Active Substance: CYCLOPHOSPHAMIDE\DOXORUBICIN\PREDNISONE\VINCRISTINE
     Dosage: UNK, (R-CHOP, 2ND LINE)
     Route: 065
     Dates: start: 202007, end: 202012
  7. POLATUZUMAB VEDOTIN [Suspect]
     Active Substance: POLATUZUMAB VEDOTIN
     Indication: Diffuse large B-cell lymphoma
     Dosage: UNK, (R-POLATUZUMAB-BENDAMUSTIN, 5TH LINE)
     Route: 065
     Dates: start: 202207, end: 202210
  8. RITUXIMAB [Suspect]
     Active Substance: RITUXIMAB
     Indication: Diffuse large B-cell lymphoma
     Dosage: 100 MILLIGRAM
     Route: 042
     Dates: start: 20150211
  9. RITUXIMAB [Suspect]
     Active Substance: RITUXIMAB
     Indication: Follicular lymphoma
     Dosage: 200 MILLIGRAM
     Route: 042
     Dates: start: 20150212
  10. RITUXIMAB [Suspect]
     Active Substance: RITUXIMAB
     Dosage: 300 MILLIGRAM
     Route: 042
     Dates: start: 20150213
  11. RITUXIMAB [Suspect]
     Active Substance: RITUXIMAB
     Dosage: UNK(R-BENDAMUSTIN, 1ST TIME)
     Route: 042
     Dates: start: 20181203, end: 20200218
  12. RITUXIMAB [Suspect]
     Active Substance: RITUXIMAB
     Dosage: UNK, (R-CHOP, 2ND LINE)
     Route: 042
     Dates: start: 202007, end: 202012
  13. RITUXIMAB [Suspect]
     Active Substance: RITUXIMAB
     Dosage: R-DHAP, 3RD LINE
     Route: 042
     Dates: start: 20210111, end: 20210228
  14. RITUXIMAB [Suspect]
     Active Substance: RITUXIMAB
     Dosage: UNK, (R-POLATUZUMAB-BENDAMUSTIN, 5TH LINE)
     Route: 042
     Dates: start: 202207, end: 202210
  15. CISPLATIN\CYTARABINE\DEXAMETHASONE [Suspect]
     Active Substance: CISPLATIN\CYTARABINE\DEXAMETHASONE
     Indication: Diffuse large B-cell lymphoma
     Dosage: UNK, (R-DHAP, 3RD LINE)
     Route: 065
     Dates: start: 20210111, end: 20210228
  16. CISPLATIN [Suspect]
     Active Substance: CISPLATIN
     Indication: Product used for unknown indication
     Dosage: UNK
     Route: 065
     Dates: start: 202101
  17. PANTOPRAZOLE SODIUM [Concomitant]
     Active Substance: PANTOPRAZOLE SODIUM
     Dosage: 40 MILLIGRAM
     Route: 065
  18. ACYCLOVIR [Concomitant]
     Active Substance: ACYCLOVIR
     Dosage: UNK
     Route: 065
  19. ALBUTEROL [Concomitant]
     Active Substance: ALBUTEROL
     Dosage: UNK, (1.25/0 0.25)
     Route: 065
  20. ELECTROLYTES NOS [Concomitant]
     Active Substance: ELECTROLYTES NOS
     Dosage: UNK
     Route: 065
  21. PANCREATIN [Concomitant]
     Active Substance: PANCRELIPASE
     Dosage: 1000 INTERNATIONAL UNIT
     Route: 065
  22. PANCREATIN [Concomitant]
     Active Substance: PANCRELIPASE
     Dosage: 10000 INTERNATIONAL UNIT
     Route: 065
  23. SULFAMETHOXAZOLE\TRIMETHOPRIM [Concomitant]
     Active Substance: SULFAMETHOXAZOLE\TRIMETHOPRIM
     Dosage: UNK
     Route: 065
  24. TINZAPARIN SODIUM [Concomitant]
     Active Substance: TINZAPARIN SODIUM
     Dosage: UNK, (3.500 ANTI-XA I.E./0,35ML)
     Route: 065
  25. SODIUM BICARBONATE [Concomitant]
     Active Substance: SODIUM BICARBONATE
     Indication: Diffuse large B-cell lymphoma
     Dosage: UNK (POLATUZUMAB-BENDAMUSTIN, 5TH LINE)
     Route: 065
     Dates: start: 20200701, end: 20221001
  26. LENALIDOMIDE [Concomitant]
     Active Substance: LENALIDOMIDE
     Dosage: 5 MILLIGRAM
     Route: 065
  27. RESONIUM [Concomitant]
     Active Substance: SODIUM POLYSTYRENE SULFONATE
     Dosage: UNK
     Route: 065

REACTIONS (18)
  - Mechanical ileus [Recovering/Resolving]
  - Ileus [Recovered/Resolved]
  - Lymphoma [Not Recovered/Not Resolved]
  - Urinary retention [Unknown]
  - Pancreatitis chronic [Unknown]
  - Cytokine release syndrome [Unknown]
  - Urinary tract obstruction [Unknown]
  - Renal failure [Recovering/Resolving]
  - Neutropenia [Recovering/Resolving]
  - Chest discomfort [Unknown]
  - Fall [Unknown]
  - Muscular weakness [Unknown]
  - Abdominal pain [Unknown]
  - Hyperhidrosis [Unknown]
  - Hypertension [Not Recovered/Not Resolved]
  - Haematotoxicity [Unknown]
  - Pyrexia [Recovered/Resolved]
  - Constipation [Unknown]

NARRATIVE: CASE EVENT DATE: 20170401
